FAERS Safety Report 25167937 (Version 4)
Quarter: 2025Q2

REPORT INFORMATION
  Report Type: Spontaneous
  Country: CA (occurrence: CA)
  Receive Date: 20250407
  Receipt Date: 20250605
  Transmission Date: 20250717
  Serious: Yes (Other)
  Sender: PFIZER
  Company Number: CA-PFIZER INC-202500070582

PATIENT
  Age: 30 Year
  Sex: Female

DRUGS (1)
  1. ABRILADA [Suspect]
     Active Substance: ADALIMUMAB-AFZB
     Indication: Psoriatic arthropathy
     Route: 058

REACTIONS (7)
  - Peripheral swelling [Unknown]
  - Joint range of motion decreased [Unknown]
  - Accidental exposure to product [Unknown]
  - Exposure via skin contact [Unknown]
  - Incorrect dose administered by device [Unknown]
  - Device defective [Unknown]
  - Device mechanical issue [Unknown]
